FAERS Safety Report 8620375-7 (Version None)
Quarter: 2012Q3

REPORT INFORMATION
  Report Type: 
  Country: None (occurrence: None)
  Receive Date: 20120824
  Receipt Date: 20120814
  Transmission Date: 20120928
  Serious: Yes (Hospitalization, Other)
  Sender: FDA-Public Use
  Company Number: US-GLAXOSMITHKLINE-A0990682A

PATIENT
  Sex: Female

DRUGS (1)
  1. PAXIL CR [Suspect]
     Indication: DEPRESSION
     Dosage: 25MG PER DAY
     Route: 064
     Dates: start: 20030923

REACTIONS (9)
  - SEPSIS [None]
  - HYPERTENSION NEONATAL [None]
  - FOETAL EXPOSURE DURING PREGNANCY [None]
  - ANAEMIA NEONATAL [None]
  - PREMATURE BABY [None]
  - TRICUSPID VALVE INCOMPETENCE [None]
  - ATRIAL SEPTAL DEFECT [None]
  - NEONATAL RESPIRATORY DISTRESS SYNDROME [None]
  - RESPIRATORY FAILURE [None]
